FAERS Safety Report 9663544 (Version 2)
Quarter: 2014Q1

REPORT INFORMATION
  Report Type: Spontaneous
  Country: US (occurrence: US)
  Receive Date: 20131101
  Receipt Date: 20140130
  Transmission Date: 20141002
  Serious: Yes (Hospitalization, Other)
  Sender: FDA-Public Use
  Company Number: US-PFIZER INC-2013309072

PATIENT
  Age: 63 Year
  Sex: Female
  Weight: 72.56 kg

DRUGS (3)
  1. EFFEXOR [Suspect]
     Indication: DEPRESSION
     Dosage: 75 MG, 2X/DAY
  2. EFFEXOR [Suspect]
     Indication: ANXIETY
  3. LIPITOR [Concomitant]
     Indication: BLOOD CHOLESTEROL INCREASED
     Dosage: 12.5 MG, 2X/DAY

REACTIONS (3)
  - Palpitations [Unknown]
  - Dyspnoea [Unknown]
  - Hypertension [Unknown]
